FAERS Safety Report 16675102 (Version 11)
Quarter: 2021Q4

REPORT INFORMATION
  Report Type: Spontaneous
  Country: US (occurrence: US)
  Receive Date: 20190806
  Receipt Date: 20211216
  Transmission Date: 20220303
  Serious: Yes (Hospitalization)
  Sender: FDA-Public Use
  Company Number: US-BIOCODEX2-201900831

PATIENT

DRUGS (10)
  1. DIACOMIT [Suspect]
     Active Substance: STIRIPENTOL
     Indication: Severe myoclonic epilepsy of infancy
     Dosage: 500 MG IN THE AM, 250 MIDDAY, 500 MG IN THE PM
     Route: 048
     Dates: start: 20190619
  2. DIACOMIT [Suspect]
     Active Substance: STIRIPENTOL
     Indication: Epilepsy
     Dosage: 250 MG THREE TIMES DAILY
     Route: 065
  3. DIACOMIT [Suspect]
     Active Substance: STIRIPENTOL
     Dosage: 250 MG TWO TIMES DAILY
     Route: 065
  4. DIACOMIT [Suspect]
     Active Substance: STIRIPENTOL
     Dosage: 250 MG THREE TIMES DAILY
     Route: 065
  5. ONFI [Concomitant]
     Active Substance: CLOBAZAM
     Indication: Severe myoclonic epilepsy of infancy
     Dosage: UNK
     Route: 065
  6. EPIDIOLEX [Concomitant]
     Active Substance: CANNABIDIOL
     Indication: Product used for unknown indication
     Route: 065
  7. FELBATOL [Concomitant]
     Active Substance: FELBAMATE
     Indication: Product used for unknown indication
     Route: 065
  8. CLORAZEPATE DIPOTASSIUM NOS [Concomitant]
     Indication: Product used for unknown indication
     Route: 065
  9. XCOPRI [Concomitant]
     Active Substance: CENOBAMATE
     Indication: Product used for unknown indication
     Route: 065
  10. MIDAZOLAM [Concomitant]
     Active Substance: MIDAZOLAM
     Indication: Product used for unknown indication
     Route: 065

REACTIONS (5)
  - Dehydration [Unknown]
  - Seizure [Unknown]
  - Abdominal pain upper [Unknown]
  - Ear infection [Unknown]
  - Product use in unapproved indication [Unknown]

NARRATIVE: CASE EVENT DATE: 20190919
